FAERS Safety Report 6571524-6 (Version None)
Quarter: 2010Q1

REPORT INFORMATION
  Report Type: 
  Country: None (occurrence: None)
  Receive Date: 20100205
  Receipt Date: 20100128
  Transmission Date: 20100710
  Serious: Yes (Hospitalization)
  Sender: FDA-Public Use
  Company Number: NO-ASTRAZENECA-2010SE03975

PATIENT
  Age: 23 Year
  Sex: Female

DRUGS (12)
  1. SEROQUEL [Suspect]
     Route: 048
  2. ABILIFY [Suspect]
     Indication: HALLUCINATION
  3. ABILIFY [Suspect]
     Indication: PSYCHOTIC DISORDER
  4. ABILIFY [Suspect]
  5. ABILIFY [Suspect]
  6. ABILIFY [Suspect]
  7. ABILIFY [Suspect]
  8. LAMICTAL [Suspect]
     Indication: EPILEPTIC PSYCHOSIS
  9. LAMICTAL [Suspect]
     Indication: MUSCLE SPASMS
  10. RIVOTRIL [Suspect]
  11. IMOVANE [Suspect]
  12. APODORM [Suspect]

REACTIONS (3)
  - MENTAL STATUS CHANGES [None]
  - NAUSEA [None]
  - VOMITING [None]
